FAERS Safety Report 6162375-5 (Version None)
Quarter: 2009Q2

REPORT INFORMATION
  Report Type: 
  Country: None (occurrence: None)
  Receive Date: 20090421
  Receipt Date: 20090408
  Transmission Date: 20091009
  Serious: Yes (Other)
  Sender: FDA-Public Use
  Company Number: JP-PFIZER INC-2009184740

PATIENT

DRUGS (2)
  1. CABASER [Suspect]
     Route: 048
  2. BROMOCRIPTINE MESYLATE [Concomitant]
     Route: 048

REACTIONS (8)
  - BLOOD PROLACTIN INCREASED [None]
  - HAEMORRHAGE [None]
  - HYPERLIPIDAEMIA [None]
  - HYPERTENSION [None]
  - HYPERURICAEMIA [None]
  - IIIRD NERVE PARALYSIS [None]
  - NEOPLASM PROGRESSION [None]
  - PITUITARY TUMOUR BENIGN [None]
